FAERS Safety Report 10100455 (Version 2)
Quarter: 2014Q2

REPORT INFORMATION
  Report Type: Spontaneous
  Country: BR (occurrence: BR)
  Receive Date: 20140423
  Receipt Date: 20140626
  Transmission Date: 20141212
  Serious: Yes (Hospitalization)
  Sender: FDA-Public Use
  Company Number: PHHY2014BR049170

PATIENT
  Age: 69 Year
  Sex: Female
  Weight: 100 kg

DRUGS (9)
  1. RASILEZ AMLO [Suspect]
     Indication: HYPERTENSION
     Dosage: 1 DF (ALIS 300MG, AMLO 5MG) DAILY
     Route: 048
  2. RASILEZ AMLO [Suspect]
     Indication: RENAL DISORDER
  3. JANUVIA [Concomitant]
     Indication: DIABETES MELLITUS
     Dosage: 100 MG, UNK
     Route: 048
  4. GLIFAGE [Concomitant]
     Indication: DIABETES MELLITUS
     Dosage: 2000 MG, A DAY
     Route: 048
  5. LOSARTAN [Concomitant]
     Indication: HYPERTENSION
     Dosage: 200 MG, A DAY
     Route: 048
  6. AMYTRIL [Concomitant]
     Indication: SPINAL PAIN
     Dosage: 50 MG, A DAY
     Route: 048
  7. OLCADIL [Concomitant]
     Indication: INSOMNIA
     Dosage: 4 MG, DAILY
     Route: 048
  8. NOVORAPID [Concomitant]
     Indication: DIABETES MELLITUS
     Dosage: 6 UNITS IN MORNING AND 8 UNITS IN AFTERNOON, UKN
  9. INSULIN NPH//INSULIN ISOPHANE BOVINE [Concomitant]
     Indication: DIABETES MELLITUS
     Dosage: 70 U AT NIGHT, UKN

REACTIONS (4)
  - Thyroid neoplasm [Recovered/Resolved]
  - Gait disturbance [Recovered/Resolved]
  - Dizziness [Recovered/Resolved]
  - Insomnia [Not Recovered/Not Resolved]
